FAERS Safety Report 16325703 (Version 1)
Quarter: 2019Q2

REPORT INFORMATION
  Report Type: Spontaneous
  Country: US (occurrence: US)
  Receive Date: 20190517
  Receipt Date: 20190517
  Transmission Date: 20190711
  Serious: Yes (Other)
  Sender: FDA-Public Use
  Company Number: US-MYLANLABS-2019M1046850

PATIENT
  Age: 24 Year
  Sex: Male

DRUGS (25)
  1. TOPIRAMATE. [Interacting]
     Active Substance: TOPIRAMATE
     Indication: TEMPORAL LOBE EPILEPSY
  2. PHENOBARBITAL. [Interacting]
     Active Substance: PHENOBARBITAL
     Indication: SEIZURE
     Dosage: STARTED ON DAY 141 OF TDM; INITIAL DOSAGE NOT STATED
     Route: 065
  3. LACOSAMIDE. [Concomitant]
     Active Substance: LACOSAMIDE
     Indication: TEMPORAL LOBE EPILEPSY
  4. QUETIAPINE. [Concomitant]
     Active Substance: QUETIAPINE
     Indication: SEIZURE
     Dosage: FROM DAY 104 TO 130 OF TDM
     Route: 065
  5. OLANZAPINE. [Concomitant]
     Active Substance: OLANZAPINE
     Indication: PSYCHOTIC DISORDER
     Dosage: ON DAY 12 OF TDM
     Route: 065
  6. LAMOTRIGINE. [Interacting]
     Active Substance: LAMOTRIGINE
     Dosage: FROM DAY 160 TO 192 OF TDM.
     Route: 065
  7. PHENYTOIN. [Interacting]
     Active Substance: PHENYTOIN
     Indication: SEIZURE
     Dosage: ON DAY 1 OF TDM UP TO DAY 130 OF TDM
     Route: 065
  8. PHENYTOIN. [Interacting]
     Active Substance: PHENYTOIN
     Indication: TEMPORAL LOBE EPILEPSY
     Dosage: ON DAY 169 OF TDM
     Route: 065
  9. QUETIAPINE. [Concomitant]
     Active Substance: QUETIAPINE
     Indication: FRONTAL LOBE EPILEPSY
  10. PHENOBARBITAL. [Interacting]
     Active Substance: PHENOBARBITAL
     Indication: FRONTAL LOBE EPILEPSY
     Dosage: ON DAY 160 OF TDM
     Route: 065
  11. LAMOTRIGINE. [Interacting]
     Active Substance: LAMOTRIGINE
     Indication: FRONTAL LOBE EPILEPSY
     Dosage: ON DAY 39 OF TDM
     Route: 065
  12. PHENOBARBITAL. [Interacting]
     Active Substance: PHENOBARBITAL
     Indication: TEMPORAL LOBE EPILEPSY
     Dosage: ON DAY 169 OF TDM
     Route: 065
  13. LACOSAMIDE. [Concomitant]
     Active Substance: LACOSAMIDE
     Indication: SEIZURE
     Dosage: FROM DAY 12 OF TDM
     Route: 065
  14. LAMOTRIGINE. [Interacting]
     Active Substance: LAMOTRIGINE
     Indication: TEMPORAL LOBE EPILEPSY
     Dosage: ON DAY 104 OF TDM
     Route: 065
  15. PHENYTOIN. [Interacting]
     Active Substance: PHENYTOIN
     Indication: FRONTAL LOBE EPILEPSY
     Dosage: ON DAY 160 OF TDM
     Route: 065
  16. TOPIRAMATE. [Interacting]
     Active Substance: TOPIRAMATE
     Indication: SEIZURE
     Dosage: FROM DAY 12 OF TDM
     Route: 065
  17. TOPIRAMATE. [Interacting]
     Active Substance: TOPIRAMATE
     Indication: FRONTAL LOBE EPILEPSY
  18. QUETIAPINE. [Concomitant]
     Active Substance: QUETIAPINE
     Indication: TEMPORAL LOBE EPILEPSY
  19. LORAZEPAM. [Concomitant]
     Active Substance: LORAZEPAM
     Indication: PSYCHOTIC DISORDER
     Dosage: FROM DAY 130 OF TDM
     Route: 042
  20. LACOSAMIDE. [Concomitant]
     Active Substance: LACOSAMIDE
     Indication: FRONTAL LOBE EPILEPSY
     Dosage: ON DAY 160 OF TDM
     Route: 065
  21. LEVOTHYROXINE. [Concomitant]
     Active Substance: LEVOTHYROXINE
     Indication: PRODUCT USED FOR UNKNOWN INDICATION
     Dosage: FROM DAY 12 OF TDM
     Route: 065
  22. LURASIDONE [Concomitant]
     Active Substance: LURASIDONE
     Indication: PSYCHOTIC DISORDER
     Dosage: ON DAY 39 OF TDM
     Route: 065
  23. LAMOTRIGINE. [Suspect]
     Active Substance: LAMOTRIGINE
     Indication: SEIZURE
     Dosage: ON DAY 1 OF TDM
     Route: 065
  24. LAMOTRIGINE. [Interacting]
     Active Substance: LAMOTRIGINE
     Dosage: ON DAY 130 OF TDM
     Route: 065
  25. LORAZEPAM. [Concomitant]
     Active Substance: LORAZEPAM
     Indication: SEIZURE

REACTIONS (3)
  - Drug level below therapeutic [Recovered/Resolved]
  - Labelled drug-drug interaction medication error [Unknown]
  - Drug level decreased [Unknown]
